FAERS Safety Report 17525130 (Version 1)
Quarter: 2020Q1

REPORT INFORMATION
  Report Type: Spontaneous
  Country: GB (occurrence: GB)
  Receive Date: 20200310
  Receipt Date: 20200310
  Transmission Date: 20200409
  Serious: Yes (Other)
  Sender: FDA-Public Use
  Company Number: GB-BAYER-2020-036789

PATIENT
  Age: 19 Year
  Sex: Female
  Weight: 56 kg

DRUGS (1)
  1. MIRENA [Suspect]
     Active Substance: LEVONORGESTREL
     Indication: DYSMENORRHOEA
     Dosage: 20?G PER DAY CONT
     Route: 015
     Dates: start: 20180105

REACTIONS (5)
  - Vaginal laceration [Unknown]
  - Skin exfoliation [Unknown]
  - Coital bleeding [Unknown]
  - Vulvovaginal pain [Unknown]
  - Vulvovaginal dryness [Unknown]

NARRATIVE: CASE EVENT DATE: 20190214
